FAERS Safety Report 24095527 (Version 1)
Quarter: 2024Q3

REPORT INFORMATION
  Report Type: Spontaneous
  Country: US (occurrence: None)
  Receive Date: 20240715
  Receipt Date: 20240715
  Transmission Date: 20241017
  Serious: Yes (Disabling, Other)
  Sender: Public
  Company Number: None

PATIENT

DRUGS (1)
  1. RISPERIDONE [Suspect]
     Active Substance: RISPERIDONE
     Indication: Psychotic disorder
     Dosage: OTHER STRENGTH : 2MG AND 4 MG TABLE;?
     Dates: start: 20240512, end: 20240630

REACTIONS (7)
  - Product substitution issue [None]
  - Dry mouth [None]
  - Dehydration [None]
  - Product prescribing issue [None]
  - Back pain [None]
  - Pain [None]
  - Burning sensation [None]

NARRATIVE: CASE EVENT DATE: 20240512
